FAERS Safety Report 17616588 (Version 1)
Quarter: 2020Q2

REPORT INFORMATION
  Report Type: Spontaneous
  Country: US (occurrence: US)
  Receive Date: 20200402
  Receipt Date: 20200402
  Transmission Date: 20200713
  Serious: No
  Sender: FDA-Public Use
  Company Number: US-TEVA-2020-US-1217121

PATIENT
  Sex: Female
  Weight: 68.1 kg

DRUGS (5)
  1. AUSTEDO [Suspect]
     Active Substance: DEUTETRABENAZINE
     Indication: HUNTINGTON^S DISEASE
     Dosage: 9 MILLIGRAM DAILY;
     Route: 048
     Dates: start: 2016
  2. ASPIRIN. [Suspect]
     Active Substance: ASPIRIN
     Route: 065
  3. VITAMIN D3 [Suspect]
     Active Substance: CHOLECALCIFEROL
     Route: 065
  4. ADVIL [Suspect]
     Active Substance: IBUPROFEN
     Route: 065
  5. MULTIVITAMIN [Suspect]
     Active Substance: VITAMINS
     Route: 065

REACTIONS (1)
  - Feeling of despair [Unknown]
